FAERS Safety Report 6565316-1 (Version None)
Quarter: 2010Q1

REPORT INFORMATION
  Report Type: 
  Country: None (occurrence: None)
  Receive Date: 20100201
  Receipt Date: 20100129
  Transmission Date: 20100710
  Serious: Yes (Death)
  Sender: FDA-Public Use
  Company Number: JP-ASTRAZENECA-2009SE32911

PATIENT
  Age: 60 Year
  Sex: Male
  Weight: 42 kg

DRUGS (9)
  1. ANAPEINE [Suspect]
     Indication: NERVE BLOCK
     Route: 053
     Dates: start: 20091210, end: 20091210
  2. XYLOCAINE [Suspect]
     Indication: NERVE BLOCK
     Dosage: 20ML 5ML
     Route: 053
     Dates: start: 20091210, end: 20091210
  3. FENTANYL [Concomitant]
     Indication: ANALGESIC THERAPY
     Dosage: 25MCG + 50MCG + 25MCG
     Route: 042
     Dates: start: 20091210, end: 20091210
  4. ASPIRIN [Concomitant]
     Indication: ANGINA PECTORIS
     Route: 048
     Dates: end: 20091209
  5. MICARDIS [Concomitant]
     Indication: HYPERTENSION
     Route: 048
     Dates: end: 20091209
  6. AMLODIPINE [Concomitant]
     Indication: HYPERTENSION
     Route: 048
     Dates: end: 20091209
  7. LANTUS [Concomitant]
     Indication: DIABETES MELLITUS
     Route: 058
     Dates: end: 20091209
  8. NOVORAPID [Concomitant]
     Indication: DIABETES MELLITUS
     Dosage: 2 IU ON IRREGULAR BASIS
     Route: 058
     Dates: end: 20091209
  9. LAC-B [Concomitant]
     Indication: GASTROINTESTINAL DISORDER
     Route: 048
     Dates: end: 20091209

REACTIONS (2)
  - CARDIAC ARREST [None]
  - RESPIRATORY ARREST [None]
